FAERS Safety Report 12778597 (Version 1)
Quarter: 2016Q3

REPORT INFORMATION
  Report Type: Spontaneous
  Country: NO (occurrence: NO)
  Receive Date: 20160926
  Receipt Date: 20160926
  Transmission Date: 20161109
  Serious: Yes (Death, Hospitalization)
  Sender: FDA-Public Use
  Company Number: NO-AXELLIA-000984

PATIENT
  Sex: Female

DRUGS (5)
  1. TEICOPLANIN [Concomitant]
     Active Substance: TEICOPLANIN
     Indication: BURN INFECTION
  2. GENTAMICIN. [Concomitant]
     Active Substance: GENTAMICIN
     Indication: BURN INFECTION
     Route: 042
  3. VANCOMYCIN [Suspect]
     Active Substance: VANCOMYCIN
     Indication: BURN INFECTION
  4. PIPERACILLIN/TAZOBACTAM [Suspect]
     Active Substance: PIPERACILLIN SODIUM\TAZOBACTAM SODIUM
     Indication: BURN INFECTION
  5. MEROPENEM. [Suspect]
     Active Substance: MEROPENEM
     Indication: BURN INFECTION

REACTIONS (7)
  - Fatigue [None]
  - Anaemia [None]
  - Sepsis [None]
  - Bacterial infection [None]
  - Multiple organ dysfunction syndrome [None]
  - Drug resistance [Fatal]
  - Hypovolaemia [None]
